FAERS Safety Report 10362107 (Version 1)
Quarter: 2014Q1

REPORT INFORMATION
  Report Type: Spontaneous
  Country: US (occurrence: None)
  Receive Date: 20140306
  Receipt Date: 20140306
  Transmission Date: 20141002
  Serious: Yes (Hospitalization)
  Sender: FDA-Public Use
  Company Number: 163-21880-13083741

PATIENT
  Age: 74 Year
  Sex: Female

DRUGS (11)
  1. REVLIMID (LENALIDOMIDE) (CAPSULES) [Suspect]
     Indication: PLASMA CELL MYELOMA
     Dosage: 10 MG, 14 IN 14 D, PO 01/06/2009 - TEMPORARILY INTERRUPTED
     Route: 048
     Dates: start: 20090106
  2. ASPIRIN (ACETYLSALICYLIC ACID) [Concomitant]
  3. CALCIUM [Concomitant]
  4. DEXTROAMETHASONE [Concomitant]
  5. ENALAPRIL MALEATE [Concomitant]
  6. FUROSEMIDE [Concomitant]
  7. MAGNESIUM GLUCONATE [Concomitant]
  8. METOPROLOL TARTRATE [Concomitant]
  9. POTASSIUM [Concomitant]
  10. VELCADE (BORTEZOMIB) [Concomitant]
  11. CYTOXAN (CYCLOPHOSPHAMIDE) [Concomitant]

REACTIONS (4)
  - Colitis ischaemic [None]
  - Rectal haemorrhage [None]
  - Thrombocytopenia [None]
  - Burning sensation [None]
